FAERS Safety Report 6504116-5 (Version None)
Quarter: 2009Q4

REPORT INFORMATION
  Report Type: 
  Country: None (occurrence: None)
  Receive Date: 20091217
  Receipt Date: 20091209
  Transmission Date: 20100525
  Serious: Yes (Hospitalization, Other)
  Sender: FDA-Public Use
  Company Number: CA-ABBOTT-09P-028-0605727-00

PATIENT
  Sex: Female
  Weight: 56.296 kg

DRUGS (6)
  1. HUMIRA [Suspect]
     Indication: CROHN'S DISEASE
     Route: 058
     Dates: start: 20080929
  2. LOSEC [Concomitant]
     Indication: DRUG USE FOR UNKNOWN INDICATION
  3. PANITOX [Concomitant]
     Indication: DRUG USE FOR UNKNOWN INDICATION
  4. VITAMIN B-12 [Concomitant]
     Indication: DRUG USE FOR UNKNOWN INDICATION
     Route: 050
  5. FOLIC ACID [Concomitant]
     Indication: DRUG USE FOR UNKNOWN INDICATION
  6. PAXIL [Concomitant]
     Indication: DRUG USE FOR UNKNOWN INDICATION
     Dosage: 1/2 TABLET

REACTIONS (13)
  - ABDOMINAL PAIN [None]
  - CHILLS [None]
  - DYSPEPSIA [None]
  - GASTROINTESTINAL INFLAMMATION [None]
  - HYPERHIDROSIS [None]
  - INCREASED UPPER AIRWAY SECRETION [None]
  - INTESTINAL DILATATION [None]
  - INTESTINAL STENOSIS [None]
  - NAUSEA [None]
  - PRODUCTIVE COUGH [None]
  - PYREXIA [None]
  - SENSORY DISTURBANCE [None]
  - TRANSFUSION [None]
